FAERS Safety Report 8911296 (Version 1)
Quarter: 2012Q4

REPORT INFORMATION
  Report Type: 
  Country: US (occurrence: US)
  Receive Date: 20121115
  Receipt Date: 20121115
  Transmission Date: 20130627
  Serious: No
  Sender: FDA-Public Use
  Company Number: US-AMGEN-USASP2012034451

PATIENT
  Sex: Male

DRUGS (3)
  1. VECTIBIX [Suspect]
     Indication: COLORECTAL CANCER METASTATIC
     Dosage: UNK
     Dates: start: 201205
  2. IRINOTECAN [Concomitant]
     Indication: COLORECTAL CANCER METASTATIC
     Dosage: UNK
  3. ANTIBIOTICS [Concomitant]
     Dosage: UNK

REACTIONS (2)
  - Cough [Not Recovered/Not Resolved]
  - Rash [Not Recovered/Not Resolved]
